FAERS Safety Report 9107154 (Version 1)
Quarter: 2013Q1

REPORT INFORMATION
  Report Type: Spontaneous
  Country: US (occurrence: US)
  Receive Date: 20130221
  Receipt Date: 20130221
  Transmission Date: 20140127
  Serious: No
  Sender: FDA-Public Use
  Company Number: US-ASTRAZENECA-2013SE09012

PATIENT
  Age: 52 Year
  Sex: Female
  Weight: 111.1 kg

DRUGS (8)
  1. LISINOPRIL [Suspect]
     Indication: HYPERTENSION
     Route: 048
  2. BRILINTA [Suspect]
     Indication: CORONARY ARTERY DISEASE
     Route: 048
     Dates: start: 20130113, end: 201301
  3. BRILINTA [Suspect]
     Indication: STENT PLACEMENT
     Route: 048
     Dates: start: 20130113, end: 201301
  4. BRILINTA [Suspect]
     Indication: CORONARY ARTERY DISEASE
     Route: 048
  5. BRILINTA [Suspect]
     Indication: STENT PLACEMENT
     Route: 048
  6. ASPIRIN [Concomitant]
     Indication: ADJUVANT THERAPY
  7. ZOCOR [Concomitant]
  8. COREG [Concomitant]

REACTIONS (2)
  - Chest pain [Unknown]
  - Dyspepsia [Unknown]
